FAERS Safety Report 7602127-X (Version None)
Quarter: 2011Q3

REPORT INFORMATION
  Report Type: 
  Country: None (occurrence: None)
  Receive Date: 20110711
  Receipt Date: 20110701
  Transmission Date: 20111222
  Serious: Yes (Death)
  Sender: FDA-Public Use
  Company Number: PHHY2011DE60410

PATIENT
  Age: 68 Year
  Sex: Male

DRUGS (3)
  1. AZATHIOPRINE [Suspect]
     Indication: IMMUNOSUPPRESSION
     Dosage: UNK
  2. ANTI-THYMOCYTE GLOBULIN NOS [Suspect]
     Indication: IMMUNOSUPPRESSION
     Dosage: UNK
  3. CYCLOSPORINE [Suspect]
     Indication: IMMUNOSUPPRESSION
     Dosage: UNK

REACTIONS (4)
  - FLANK PAIN [None]
  - RENAL CELL CARCINOMA [None]
  - FATIGUE [None]
  - WEIGHT DECREASED [None]
